FAERS Safety Report 20110171 (Version 2)
Quarter: 2021Q4

REPORT INFORMATION
  Report Type: Spontaneous
  Country: JP (occurrence: JP)
  Receive Date: 20211124
  Receipt Date: 20211216
  Transmission Date: 20220303
  Serious: Yes (Other)
  Sender: FDA-Public Use
  Company Number: JP-UCBJ-CD202110252UCBPHAPROD

PATIENT
  Age: 80 Year
  Sex: Female

DRUGS (2)
  1. LEVETIRACETAM [Suspect]
     Active Substance: LEVETIRACETAM
     Indication: Product used for unknown indication
     Dosage: 500MG, ONE TABLET IN THE MORNING, ONE TABLET AT NOON AND TWO TABLETS IN THE EVENING
     Route: 048
  2. ALUMINUM SILICATE [Concomitant]
     Active Substance: ALUMINUM SILICATE
     Indication: Dehydration

REACTIONS (3)
  - Enterostomy [Unknown]
  - Gastrointestinal stoma output increased [Unknown]
  - Off label use [Unknown]

NARRATIVE: CASE EVENT DATE: 20211110
